FAERS Safety Report 12346580 (Version 1)
Quarter: 2016Q2

REPORT INFORMATION
  Report Type: Spontaneous
  Country: US (occurrence: US)
  Receive Date: 20160509
  Receipt Date: 20160509
  Transmission Date: 20160815
  Serious: Yes (Hospitalization)
  Sender: FDA-Public Use
  Company Number: US-PFIZER INC-2016245928

PATIENT
  Age: 68 Year
  Sex: Male

DRUGS (11)
  1. LASIX [Concomitant]
     Active Substance: FUROSEMIDE
  2. SUTENT [Suspect]
     Active Substance: SUNITINIB MALATE
     Dosage: 50 MG, CYCLIC (14 DAYS ON/ 7 DAYS OFF)
     Dates: start: 20160427
  3. DURAGESIC [Concomitant]
     Active Substance: FENTANYL
  4. OXYCONTIN [Concomitant]
     Active Substance: OXYCODONE HYDROCHLORIDE
  5. SUTENT [Suspect]
     Active Substance: SUNITINIB MALATE
     Indication: METASTATIC RENAL CELL CARCINOMA
     Dosage: 50 MG, CYCLIC (28 DAYS ON/ 21 DAYS OFF)
     Dates: start: 20160309
  6. DEXAMETHASONE. [Concomitant]
     Active Substance: DEXAMETHASONE
  7. OXYCODONE [Concomitant]
     Active Substance: OXYCODONE
  8. XGEVA [Concomitant]
     Active Substance: DENOSUMAB
  9. POTASSIUM [Concomitant]
     Active Substance: POTASSIUM
  10. ZOFRAN [Concomitant]
     Active Substance: ONDANSETRON HYDROCHLORIDE
  11. PROTONIX [Concomitant]
     Active Substance: PANTOPRAZOLE SODIUM

REACTIONS (8)
  - Pyrexia [Unknown]
  - Nausea [Unknown]
  - Disease progression [Unknown]
  - Vomiting [Unknown]
  - Asthenia [Unknown]
  - Spinal fracture [Unknown]
  - Metastatic renal cell carcinoma [Unknown]
  - Fluid retention [Unknown]

NARRATIVE: CASE EVENT DATE: 20160315
